FAERS Safety Report 8295714-X (Version None)
Quarter: 2012Q2

REPORT INFORMATION
  Report Type: 
  Country: None (occurrence: None)
  Receive Date: 20120418
  Receipt Date: 20120412
  Transmission Date: 20120825
  Serious: Yes (Hospitalization)
  Sender: FDA-Public Use
  Company Number: GXBR2012US001095

PATIENT
  Sex: Male
  Weight: 59.6 kg

DRUGS (2)
  1. TESSALON [Concomitant]
     Indication: COUGH
     Dosage: 1 DF, PRN
     Route: 048
  2. OMNITROPE [Suspect]
     Indication: GROWTH HORMONE DEFICIENCY
     Dosage: 3.5 MG PER DAY X 6 DAYS A WEEK
     Dates: end: 20120401

REACTIONS (1)
  - CONVULSION [None]
